FAERS Safety Report 6086105-0 (Version None)
Quarter: 2009Q1

REPORT INFORMATION
  Report Type: 
  Country: None (occurrence: None)
  Receive Date: 20090220
  Receipt Date: 20090209
  Transmission Date: 20090719
  Serious: Yes (Other)
  Sender: FDA-Public Use
  Company Number: FR-JNJFOC-20090202474

PATIENT
  Age: 31 Year
  Sex: Female

DRUGS (1)
  1. REMICADE [Suspect]
     Indication: ANKYLOSING SPONDYLITIS
     Route: 042

REACTIONS (5)
  - ERECTILE DYSFUNCTION [None]
  - MOTOR DYSFUNCTION [None]
  - PAIN IN EXTREMITY [None]
  - PYREXIA [None]
  - TYPE IV HYPERSENSITIVITY REACTION [None]
